FAERS Safety Report 16634683 (Version 2)
Quarter: 2019Q3

REPORT INFORMATION
  Report Type: Spontaneous
  Country: SE (occurrence: SE)
  Receive Date: 20190726
  Receipt Date: 20190806
  Transmission Date: 20191004
  Serious: Yes (Disabling)
  Sender: FDA-Public Use
  Company Number: SE-ACCORD-148941

PATIENT
  Age: 74 Year
  Sex: Female
  Weight: 91 kg

DRUGS (14)
  1. WARAN [Suspect]
     Active Substance: WARFARIN SODIUM
     Indication: THROMBOSIS PROPHYLAXIS
     Dosage: DOSE AFTER BLOOD SAMPLE. 1, 2.2.1.2.1.2. WEEKLY DOSE, STRENGTH: 2,5 MG
     Dates: start: 2009
  2. ALVEDON FORTE [Suspect]
     Active Substance: ACETAMINOPHEN
     Indication: PAIN
     Dosage: STRENGTH: 1 G, 1 TABLET IF REQUIRED
     Dates: start: 20181227
  3. FOLIC ACID. [Suspect]
     Active Substance: FOLIC ACID
     Indication: FOLATE DEFICIENCY
     Dates: start: 2017
  4. VITAMIN D3 [Suspect]
     Active Substance: CHOLECALCIFEROL
     Indication: OSTEOPOROSIS
  5. POTASSIUM [Suspect]
     Active Substance: POTASSIUM
     Indication: HYPOKALAEMIA
     Dosage: 1 TABLET 2 DAYS DAILY
     Dates: start: 20181129
  6. FURIX (FUROSEMIDE) [Suspect]
     Active Substance: FUROSEMIDE
     Indication: FLUID RETENTION
     Dosage: STRENGTH: 40 MG, 1 TABLET DAILY, MORE IF REQUIRED
     Dates: start: 2012
  7. CANDESARTAN CILEXETIL. [Suspect]
     Active Substance: CANDESARTAN CILEXETIL
     Indication: PRODUCT USED FOR UNKNOWN INDICATION
     Dosage: 2 TABLETS 2 DAYS DAILY
     Dates: start: 201811
  8. OMEPRAZOLE. [Suspect]
     Active Substance: OMEPRAZOLE
     Indication: GASTRIC PH DECREASED
     Dosage: 2 CAPSULES 1G DAILY FOR 4 WEEKS. THEN 1 CAPSULE 1G DAILY, DOSE 1
     Dates: start: 20181129
  9. METOPROLOL. [Suspect]
     Active Substance: METOPROLOL
     Indication: PRODUCT USED FOR UNKNOWN INDICATION
     Dates: start: 2011
  10. MIRTAZAPINE. [Suspect]
     Active Substance: MIRTAZAPINE
     Indication: SLEEP DISORDER
     Dosage: 0.5 TABLETS 1 DAY DAILY AT 7 PM
     Dates: start: 20181127
  11. PREDNISOLONE. [Suspect]
     Active Substance: PREDNISOLONE
     Indication: RHEUMATIC DISORDER
     Dosage: 1 TABLET 1 TIME DAILY
     Dates: start: 2004
  12. DIVISUN [Suspect]
     Active Substance: CHOLECALCIFEROL
     Indication: VITAMIN SUPPLEMENTATION
     Dosage: STRENGTH: 2000 IU, 1 TABLET 1 TIME DAILY
     Dates: start: 20181210, end: 20190619
  13. ALLOPURINOL. [Suspect]
     Active Substance: ALLOPURINOL
     Indication: PROPHYLAXIS
     Dosage: 2 TABLETS OF 1 DAY DAILY
     Dates: start: 20181126
  14. BEHEPAN [CYANOCOBALAMIN] [Suspect]
     Active Substance: CYANOCOBALAMIN
     Indication: VITAMIN B12 DEFICIENCY
     Dosage: STRENGTH: 1 MG, 1 TABLET 1 DAY DAILY
     Dates: start: 2012

REACTIONS (1)
  - Drug eruption [Not Recovered/Not Resolved]

NARRATIVE: CASE EVENT DATE: 201901
